FAERS Safety Report 25166096 (Version 1)
Quarter: 2025Q2

REPORT INFORMATION
  Report Type: Spontaneous
  Country: US (occurrence: US)
  Receive Date: 20250407
  Receipt Date: 20250407
  Transmission Date: 20250717
  Serious: No
  Sender: TAKEDA
  Company Number: US-TAKEDA-2025TUS034079

PATIENT
  Sex: Male

DRUGS (1)
  1. LIVTENCITY [Suspect]
     Active Substance: MARIBAVIR
     Indication: Pathogen resistance
     Dosage: 400 MILLIGRAM, BID
     Dates: start: 20250402

REACTIONS (1)
  - Dysgeusia [Unknown]
